FAERS Safety Report 6447549-8 (Version None)
Quarter: 2009Q4

REPORT INFORMATION
  Report Type: 
  Country: None (occurrence: None)
  Receive Date: 20091119
  Receipt Date: 20091109
  Transmission Date: 20100525
  Serious: Yes (Other)
  Sender: FDA-Public Use
  Company Number: US-ABBOTT-09P-163-0607868-00

PATIENT
  Sex: Female
  Weight: 49.94 kg

DRUGS (4)
  1. HUMIRA [Suspect]
     Indication: PSORIATIC ARTHROPATHY
     Route: 058
     Dates: start: 20080606, end: 20091001
  2. NORCO [Concomitant]
     Indication: ARTHRALGIA
     Route: 048
  3. COLLAGEN [Concomitant]
     Indication: URINARY INCONTINENCE
     Dates: start: 20050101, end: 20050101
  4. COLLAGEN [Concomitant]
     Dates: start: 20091015

REACTIONS (9)
  - BREAST MASS [None]
  - ENDOMETRIAL HYPERPLASIA [None]
  - FRACTURE [None]
  - HAEMORRHAGE [None]
  - LIMB INJURY [None]
  - OEDEMA PERIPHERAL [None]
  - PAIN IN EXTREMITY [None]
  - PSORIATIC ARTHROPATHY [None]
  - VAGINAL HAEMORRHAGE [None]
